FAERS Safety Report 9689160 (Version 2)
Quarter: 2014Q1

REPORT INFORMATION
  Report Type: Report from Study
  Country: NL (occurrence: NL)
  Receive Date: 20131114
  Receipt Date: 20140321
  Transmission Date: 20141002
  Serious: Yes (Other)
  Sender: FDA-Public Use
  Company Number: NL-TEVA-444085ISR

PATIENT
  Age: 46 Year
  Sex: Female

DRUGS (4)
  1. COPAXONE [Suspect]
     Dosage: 20 MILLIGRAM DAILY;
     Route: 058
     Dates: start: 20130913
  2. INSULINE NOVORAPID [Concomitant]
     Dosage: 40 IU (INTERNATIONAL UNIT) DAILY; 10 ML PUMP
  3. THYRAX [Concomitant]
     Dosage: 125 MICROGRAM DAILY;
  4. CITALOPRAM [Concomitant]
     Dosage: 40 MILLIGRAM DAILY;

REACTIONS (1)
  - Blood glucose decreased [Recovered/Resolved]
